FAERS Safety Report 5087364-3 (Version None)
Quarter: 2006Q3

REPORT INFORMATION
  Report Type: 
  Country: None (occurrence: None)
  Receive Date: 20060823
  Receipt Date: 20060823
  Transmission Date: 20061208
  Serious: Yes (Hospitalization)
  Sender: FDA-Public Use
  Company Number: None

PATIENT
  Sex: Male
  Weight: 68.4932 kg

DRUGS (9)
  1. OXALIPLATIN [Suspect]
     Indication: NEOPLASM MALIGNANT
     Dosage: 115 MG     DAY 1 + 15 Q 28 DA      IV DRIP
     Route: 041
     Dates: start: 20060426, end: 20060803
  2. XELODA [Suspect]
     Indication: NEOPLASM MALIGNANT
     Dosage: 1000 MG    BID  D1-7+15-21Q28     PO
     Route: 048
     Dates: start: 20060426, end: 20060808
  3. PERCOCET [Concomitant]
  4. SENOKOT [Concomitant]
  5. ASPIRIN [Concomitant]
  6. MEGACE [Concomitant]
  7. PROCRIT [Concomitant]
  8. KYTRIL [Concomitant]
  9. DECADRON [Concomitant]

REACTIONS (4)
  - ACUTE MYOCARDIAL INFARCTION [None]
  - FALL [None]
  - SWELLING FACE [None]
  - SYNCOPE VASOVAGAL [None]
